FAERS Safety Report 24546359 (Version 1)
Quarter: 2024Q4

REPORT INFORMATION
  Report Type: Other
  Country: US (occurrence: US)
  Receive Date: 20241024
  Receipt Date: 20241024
  Transmission Date: 20250114
  Serious: Yes (Hospitalization, Other)
  Sender: B BRAUN
  Company Number: US-B.Braun Medical Inc.-2163333

PATIENT
  Sex: Female

DRUGS (10)
  1. METRONIDAZOLE [Suspect]
     Active Substance: METRONIDAZOLE
     Indication: Evidence based treatment
  2. METRONIDAZOLE [Suspect]
     Active Substance: METRONIDAZOLE
     Indication: Psoas abscess
  3. METRONIDAZOLE [Suspect]
     Active Substance: METRONIDAZOLE
     Indication: Osteomyelitis
  4. METRONIDAZOLE [Suspect]
     Active Substance: METRONIDAZOLE
     Indication: Intervertebral discitis
  5. CEFEPIME [Suspect]
     Active Substance: CEFEPIME HYDROCHLORIDE
  6. RITUXIMAB [Concomitant]
     Active Substance: RITUXIMAB
  7. DEXAMETHASONE [Concomitant]
     Active Substance: DEXAMETHASONE
  8. IDARUBICIN [Concomitant]
     Active Substance: IDARUBICIN
  9. VINCRISTINE [Concomitant]
     Active Substance: VINCRISTINE
  10. VANCOMYCIN [Suspect]
     Active Substance: VANCOMYCIN

REACTIONS (2)
  - Tubulointerstitial nephritis [Unknown]
  - Encephalopathy [Unknown]
